FAERS Safety Report 15770366 (Version 6)
Quarter: 2020Q1

REPORT INFORMATION
  Report Type: Spontaneous
  Country: US (occurrence: US)
  Receive Date: 20181228
  Receipt Date: 20200306
  Transmission Date: 20200409
  Serious: No
  Sender: FDA-Public Use
  Company Number: US-009507513-1812USA011866

PATIENT
  Age: 69 Year
  Sex: Female

DRUGS (5)
  1. INTRON A [Suspect]
     Active Substance: INTERFERON ALFA-2B
     Indication: MESOTHELIOMA
     Dosage: 0.15 MILLIGRAM, DAILY
  2. INTRON A [Suspect]
     Active Substance: INTERFERON ALFA-2B
     Dosage: 0.15 MILLIGRAM, DAILY
  3. INTRON A [Suspect]
     Active Substance: INTERFERON ALFA-2B
     Dosage: 0.15 MILLIGRAM, ONCE A DAY AT NIGHT
  4. INTRON A [Suspect]
     Active Substance: INTERFERON ALFA-2B
     Dosage: STRENGTH : 25 MIU , HSA-FREE SOLUTION,  AND DOSE: 25DOSE; MICROUNITS (MU), QD
     Dates: start: 201904
  5. INTRON A [Suspect]
     Active Substance: INTERFERON ALFA-2B
     Dosage: 0.15 MILLIGRAM, ONCE A DAY AT NIGHT

REACTIONS (6)
  - Poor quality product administered [Unknown]
  - Product packaging issue [Unknown]
  - Product dose omission [Unknown]
  - Product use in unapproved indication [Unknown]
  - Liquid product physical issue [Unknown]
  - No adverse event [Unknown]

NARRATIVE: CASE EVENT DATE: 20181224
